FAERS Safety Report 4304261-9 (Version None)
Quarter: 2004Q1

REPORT INFORMATION
  Report Type: 
  Country: None (occurrence: None)
  Receive Date: 20040225
  Receipt Date: 20040203
  Transmission Date: 20041129
  Serious: Yes (Other)
  Sender: FDA-Public Use
  Company Number: WAES 0402USA00570

PATIENT
  Age: 48 Year
  Sex: Female
  Weight: 65 kg

DRUGS (5)
  1. LORTAB [Concomitant]
  2. PREMARIN [Concomitant]
  3. PREDNISONE [Concomitant]
  4. VIOXX [Suspect]
     Indication: OSTEOARTHRITIS
     Route: 048
     Dates: start: 20030101
  5. VIOXX [Suspect]
     Indication: SPONDYLOSIS
     Route: 048
     Dates: start: 20030101

REACTIONS (2)
  - TREATMENT NONCOMPLIANCE [None]
  - URINARY INCONTINENCE [None]
